FAERS Safety Report 8007876-X (Version None)
Quarter: 2011Q4

REPORT INFORMATION
  Report Type: 
  Country: None (occurrence: None)
  Receive Date: 20111222
  Receipt Date: 20111122
  Transmission Date: 20120403
  Serious: Yes (Hospitalization)
  Sender: FDA-Public Use
  Company Number: WSDF_00195

PATIENT
  Sex: Female
  Weight: 91.3 kg

DRUGS (3)
  1. WINRHO [Suspect]
  2. WINRHO [Suspect]
     Indication: IDIOPATHIC THROMBOCYTOPENIC PURPURA
     Dosage: (25.2 UG/KG TOTAL INTRAVENOUS (NOT OTHERWISE SPECIFIED)) ; (INTRAVENOUS (NOT OTHERWISE SPECIFIED))
     Route: 042
     Dates: start: 20001127, end: 20001127
  3. WINRHO [Suspect]
     Indication: IDIOPATHIC THROMBOCYTOPENIC PURPURA
     Dosage: (25.2 UG/KG TOTAL INTRAVENOUS (NOT OTHERWISE SPECIFIED)) ; (INTRAVENOUS (NOT OTHERWISE SPECIFIED))
     Route: 042
     Dates: start: 20001127, end: 20001127

REACTIONS (12)
  - CONDITION AGGRAVATED [None]
  - CHEST DISCOMFORT [None]
  - FACE OEDEMA [None]
  - DIALYSIS [None]
  - INTRAVASCULAR HAEMOLYSIS [None]
  - OEDEMA PERIPHERAL [None]
  - VULVOVAGINAL SWELLING [None]
  - RENAL FAILURE [None]
  - IDIOPATHIC THROMBOCYTOPENIC PURPURA [None]
  - PAIN IN EXTREMITY [None]
  - MALAISE [None]
  - BLOOD URINE PRESENT [None]
